FAERS Safety Report 6526287-7 (Version None)
Quarter: 2009Q4

REPORT INFORMATION
  Report Type: 
  Country: None (occurrence: None)
  Receive Date: 20091228
  Receipt Date: 20091216
  Transmission Date: 20100525
  Serious: Yes (Death)
  Sender: FDA-Public Use
  Company Number: 8054289

PATIENT
  Sex: Male

DRUGS (2)
  1. HYDROCODONE BITARTRATE AND ACETAMINOPHEN [Suspect]
     Dosage: ()
  2. OXYCODONE HYDROCHLORIDE [Suspect]

REACTIONS (3)
  - DRUG DEPENDENCE [None]
  - OVERDOSE [None]
  - PRODUCT QUALITY ISSUE [None]
